FAERS Safety Report 9857153 (Version 1)
Quarter: 2014Q1

REPORT INFORMATION
  Report Type: Spontaneous
  Country: JP (occurrence: None)
  Receive Date: 20140128
  Receipt Date: 20140128
  Transmission Date: 20141002
  Serious: Yes (Death, Hospitalization, Other)
  Sender: FDA-Public Use
  Company Number: CO-OR-JP-2014-003

PATIENT
  Age: 77 Year
  Sex: Female

DRUGS (7)
  1. PREDNISOLONE (PREDNISOLONE) [Suspect]
     Indication: GLOMERULONEPHRITIS
     Route: 048
  2. METHYLPREDNISOLONE (METHYLPREDNISOLONE) [Suspect]
     Route: 042
  3. SULFAMETHOXAZOLE [Suspect]
     Indication: GLOMERULONEPHRITIS
  4. TRIMETHOPRIM (TRIMETHOPRIM) [Suspect]
     Indication: GLOMERULONEPHRITIS
  5. CYCLOPHOSPHAMIDE (CYCLOPHOSPHAMIDE) [Suspect]
     Indication: GLOMERULONEPHRITIS
  6. OLMESARTAN (OLMESARTAN ) [Concomitant]
  7. AMLODIPINE (AMLODIPINE  ) [Concomitant]

REACTIONS (4)
  - Sepsis [None]
  - Candida pneumonia [None]
  - Cytomegalovirus infection [None]
  - Drug ineffective [None]
